FAERS Safety Report 18469293 (Version 1)
Quarter: 2020Q4

REPORT INFORMATION
  Report Type: Spontaneous
  Country: JP (occurrence: JP)
  Receive Date: 20201105
  Receipt Date: 20201105
  Transmission Date: 20210114
  Serious: Yes (Other)
  Sender: FDA-Public Use
  Company Number: JP-OTSUKA-2020_026556

PATIENT
  Age: 4 Decade
  Sex: Male

DRUGS (2)
  1. ABILIFY [Suspect]
     Active Substance: ARIPIPRAZOLE
     Indication: SCHIZOPHRENIA
     Dosage: 30MG, UNK
     Route: 065
  2. OLANZAPINE. [Suspect]
     Active Substance: OLANZAPINE
     Indication: PRODUCT USED FOR UNKNOWN INDICATION
     Dosage: 15MG, UNK
     Route: 065

REACTIONS (10)
  - Sleep apnoea syndrome [Unknown]
  - Hyperphagia [Unknown]
  - Urinary incontinence [Unknown]
  - Affect lability [Unknown]
  - Palpitations [Unknown]
  - Blood triglycerides abnormal [Unknown]
  - Akathisia [Unknown]
  - Polydipsia [Unknown]
  - Chest pain [Unknown]
  - Weight increased [Unknown]
